FAERS Safety Report 14454279 (Version 1)
Quarter: 2018Q1

REPORT INFORMATION
  Report Type: Spontaneous
  Country: US (occurrence: US)
  Receive Date: 20180129
  Receipt Date: 20180129
  Transmission Date: 20180509
  Serious: No
  Sender: FDA-Public Use
  Company Number: US-PERRIGO-17US032092

PATIENT
  Age: 25 Year
  Sex: Male
  Weight: 97.51 kg

DRUGS (2)
  1. TRETINOIN. [Suspect]
     Active Substance: TRETINOIN
     Indication: SKIN STRIAE
     Dosage: ONE QUARTER SIZED AMOUNT, QD
     Route: 061
     Dates: start: 20170817, end: 20170908
  2. TRETINOIN. [Suspect]
     Active Substance: TRETINOIN
     Indication: ACCIDENTAL EXPOSURE TO PRODUCT
     Dosage: UNKNOWN, SINGLE
     Route: 061
     Dates: start: 20170908, end: 20170908

REACTIONS (6)
  - Accidental exposure to product [Recovered/Resolved]
  - Off label use [Recovered/Resolved]
  - Genital discomfort [Not Recovered/Not Resolved]
  - Genital infection male [Not Recovered/Not Resolved]
  - Therapeutic response unexpected [Recovered/Resolved]
  - Genital tract inflammation [Not Recovered/Not Resolved]

NARRATIVE: CASE EVENT DATE: 20170817
